FAERS Safety Report 6993983-7 (Version None)
Quarter: 2010Q3

REPORT INFORMATION
  Report Type: 
  Country: None (occurrence: None)
  Receive Date: 20100917
  Receipt Date: 20100720
  Transmission Date: 20110219
  Serious: No
  Sender: FDA-Public Use
  Company Number: US-ASTRAZENECA-2010SE27626

PATIENT
  Sex: Female
  Weight: 107.5 kg

DRUGS (1)
  1. SEROQUEL [Suspect]
     Indication: BIPOLAR DISORDER
     Route: 048

REACTIONS (8)
  - BIPOLAR I DISORDER [None]
  - DEPRESSION [None]
  - DRUG DOSE OMISSION [None]
  - HEADACHE [None]
  - INSOMNIA [None]
  - MALAISE [None]
  - VOMITING [None]
  - WITHDRAWAL SYNDROME [None]
